FAERS Safety Report 8052587-8 (Version None)
Quarter: 2012Q1

REPORT INFORMATION
  Report Type: 
  Country: None (occurrence: None)
  Receive Date: 20120118
  Receipt Date: 20120112
  Transmission Date: 20120608
  Serious: Yes (Other)
  Sender: FDA-Public Use
  Company Number: US-SHIRE-ALL1-2011-04763

PATIENT
  Sex: Male
  Weight: 43.084 kg

DRUGS (2)
  1. VYVANSE [Suspect]
     Dosage: 30 MG, 1X/DAY:QD
     Route: 048
     Dates: start: 20110501, end: 20110501
  2. VYVANSE [Suspect]
     Indication: ATTENTION DEFICIT/HYPERACTIVITY DISORDER
     Dosage: 30 MG, 1X/DAY:QD
     Route: 048
     Dates: start: 20110801, end: 20110101

REACTIONS (6)
  - AFFECT LABILITY [None]
  - LOSS OF CONSCIOUSNESS [None]
  - BLOOD GLUCOSE DECREASED [None]
  - SUICIDAL IDEATION [None]
  - DEPRESSION [None]
  - DECREASED APPETITE [None]
